FAERS Safety Report 4715958-0 (Version None)
Quarter: 2005Q3

REPORT INFORMATION
  Report Type: 
  Country: None (occurrence: None)
  Receive Date: 20050718
  Receipt Date: 20050707
  Transmission Date: 20060218
  Serious: Yes (Hospitalization)
  Sender: FDA-Public Use
  Company Number: US-BOEHRINGER INGELHEIM PHARMACEUTICALS, INC.-2005-BP-11447BP

PATIENT
  Sex: Male
  Weight: 122 kg

DRUGS (4)
  1. TIPRANAVIR / RITONAVIR CAPSULES [Suspect]
     Indication: HIV INFECTION
     Dosage: TPV ?/ RTV 400MG
     Route: 048
  2. FUZEON [Concomitant]
     Route: 058
  3. VIREAD [Concomitant]
     Route: 048
  4. ZITHROMAX [Concomitant]
     Route: 048

REACTIONS (2)
  - INTESTINAL STOMA COMPLICATION [None]
  - POST PROCEDURAL HAEMORRHAGE [None]
